FAERS Safety Report 7045852-4 (Version None)
Quarter: 2010Q4

REPORT INFORMATION
  Report Type: 
  Country: None (occurrence: None)
  Receive Date: 20101014
  Receipt Date: 20101011
  Transmission Date: 20110411
  Serious: Yes (Death)
  Sender: FDA-Public Use
  Company Number: US-GILEAD-2010-0032468

PATIENT
  Age: 64 Year
  Sex: Male
  Weight: 118.04 kg

DRUGS (13)
  1. LETAIRIS [Suspect]
     Indication: PULMONARY ARTERIAL HYPERTENSION
     Route: 048
     Dates: start: 20100326, end: 20100922
  2. OXYGEN [Concomitant]
  3. ASPIRIN [Concomitant]
  4. LASIX [Concomitant]
  5. LABETALOL HCL [Concomitant]
  6. COZAAR [Concomitant]
  7. NIFEDIPINE [Concomitant]
  8. NIACIN [Concomitant]
  9. SIMVASTATIN [Concomitant]
  10. SYMBICORT [Concomitant]
  11. SPIRIVA [Concomitant]
  12. HUMULIN 70/30 [Concomitant]
  13. GEMFIBROZIL [Concomitant]

REACTIONS (1)
  - DEATH [None]
